FAERS Safety Report 8923353 (Version 1)
Quarter: 2012Q4

REPORT INFORMATION
  Report Type: 
  Country: GR (occurrence: GR)
  Receive Date: 20121124
  Receipt Date: 20121124
  Transmission Date: 20130627
  Serious: Yes (Death, Hospitalization)
  Sender: FDA-Public Use
  Company Number: PHHY2012GR105855

PATIENT
  Age: 47 Year
  Sex: Female
  Weight: 54 kg

DRUGS (8)
  1. AFINITOR [Suspect]
     Indication: BREAST CANCER
     Dosage: 5 mg, QD
     Route: 048
     Dates: start: 20120722, end: 20120823
  2. AFINITOR [Suspect]
     Dosage: 5 mg, QD
     Route: 048
     Dates: start: 20120830, end: 20121011
  3. THYROHORMONE [Concomitant]
     Dosage: 0.1 mg, QD
     Route: 048
  4. LAPZOL [Concomitant]
     Dosage: 1 DF, QD
     Route: 048
  5. LIPITOR [Concomitant]
     Dosage: 1 DF, QD
     Route: 048
  6. AROMASIN [Concomitant]
     Dosage: 1 DF, QD
     Route: 048
  7. ZOLOFT [Concomitant]
     Dosage: 1 DF, QD
     Route: 048
  8. ALDACTONE [Concomitant]
     Dosage: 1 DF, Q8H
     Route: 048

REACTIONS (1)
  - Diarrhoea haemorrhagic [Fatal]
